FAERS Safety Report 17373138 (Version 1)
Quarter: 2020Q1

REPORT INFORMATION
  Report Type: Report from Study
  Country: EG (occurrence: EG)
  Receive Date: 20200205
  Receipt Date: 20200205
  Transmission Date: 20200409
  Serious: Yes (Death, Hospitalization)
  Sender: FDA-Public Use
  Company Number: NVSC2020EG028209

PATIENT
  Age: 45 Year
  Sex: Male

DRUGS (1)
  1. TASIGNA [Suspect]
     Active Substance: NILOTINIB
     Indication: CHRONIC MYELOID LEUKAEMIA
     Dosage: 4 DF, QD
     Route: 065

REACTIONS (13)
  - Tendon rupture [Fatal]
  - Polymerase chain reaction positive [Fatal]
  - Cerebral haemorrhage [Fatal]
  - Abdominal pain [Not Recovered/Not Resolved]
  - Anaemia [Fatal]
  - Intestinal obstruction [Not Recovered/Not Resolved]
  - Vein rupture [Fatal]
  - Haemorrhage [Fatal]
  - Platelet count decreased [Fatal]
  - Vomiting [Not Recovered/Not Resolved]
  - Dyschezia [Not Recovered/Not Resolved]
  - Hemiplegia [Fatal]
  - Abscess [Recovering/Resolving]

NARRATIVE: CASE EVENT DATE: 201904
